FAERS Safety Report 25871454 (Version 1)
Quarter: 2025Q4

REPORT INFORMATION
  Report Type: Spontaneous
  Country: US (occurrence: US)
  Receive Date: 20251001
  Receipt Date: 20251001
  Transmission Date: 20260117
  Serious: Yes (Hospitalization, Other)
  Sender: BRISTOL-MYERS SQUIBB COMPANY
  Company Number: US-BRISTOL-MYERS SQUIBB COMPANY-2025-134354

PATIENT
  Age: 76 Year
  Sex: Male

DRUGS (2)
  1. IDHIFA [Suspect]
     Active Substance: ENASIDENIB MESYLATE
     Indication: Acute myeloid leukaemia
     Dates: start: 202508
  2. XOSPATA [Suspect]
     Active Substance: GILTERITINIB
     Indication: Product used for unknown indication

REACTIONS (3)
  - Infection [Unknown]
  - Pneumonia [Unknown]
  - White blood cell count decreased [Unknown]
